FAERS Safety Report 25544851 (Version 1)
Quarter: 2025Q3

REPORT INFORMATION
  Report Type: Spontaneous
  Country: US (occurrence: US)
  Receive Date: 20250711
  Receipt Date: 20250711
  Transmission Date: 20251021
  Serious: No
  Sender: SANOFI AVENTIS
  Company Number: US-SANOFI-02582147

PATIENT
  Age: 42 Year
  Sex: Female

DRUGS (2)
  1. DUPIXENT [Suspect]
     Active Substance: DUPILUMAB
     Indication: Ageusia
     Dosage: 300 MG, QOW
     Route: 065
     Dates: start: 2025, end: 202504
  2. DUPIXENT [Suspect]
     Active Substance: DUPILUMAB
     Indication: Anosmia

REACTIONS (5)
  - Ageusia [Unknown]
  - Rebound effect [Unknown]
  - Anosmia [Unknown]
  - Rebound effect [Unknown]
  - Off label use [Unknown]

NARRATIVE: CASE EVENT DATE: 20250101
